FAERS Safety Report 4387125-4 (Version None)
Quarter: 2004Q2

REPORT INFORMATION
  Report Type: 
  Country: None (occurrence: None)
  Receive Date: 20040630
  Receipt Date: 20040311
  Transmission Date: 20050107
  Serious: No
  Sender: FDA-Public Use
  Company Number: US-GLAXOSMITHKLINE-A0502360A

PATIENT
  Age: 63 Year
  Sex: Male

DRUGS (9)
  1. ADVAIR HFA [Suspect]
     Indication: ASTHMA
     Dosage: 1PUFF TWICE PER DAY
     Route: 055
  2. GLUCOTROL [Concomitant]
  3. VASOTEC [Concomitant]
  4. RHINOCORT [Concomitant]
  5. LOZOL [Concomitant]
  6. ASTELIN [Concomitant]
  7. CLARINEX [Concomitant]
  8. GLUCOPHAGE [Concomitant]
  9. MULTI-VITAMINS [Concomitant]

REACTIONS (3)
  - EAR DISCOMFORT [None]
  - EAR INFECTION [None]
  - ORAL CANDIDIASIS [None]
